FAERS Safety Report 23902151 (Version 1)
Quarter: 2024Q2

REPORT INFORMATION
  Report Type: Spontaneous
  Country: US (occurrence: None)
  Receive Date: 20240527
  Receipt Date: 20240527
  Transmission Date: 20240715
  Serious: No
  Sender: FDA-Public Use
  Company Number: US-ROCHE-3409140

PATIENT
  Sex: Male

DRUGS (3)
  1. ACTEMRA [Suspect]
     Active Substance: TOCILIZUMAB
     Indication: Product used for unknown indication
     Dosage: STRENGTH: 162 MG/ 0.9 M
     Route: 058
     Dates: start: 202307
  2. ACTEMRA [Suspect]
     Active Substance: TOCILIZUMAB
  3. OFEV [Concomitant]
     Active Substance: NINTEDANIB

REACTIONS (1)
  - Diarrhoea [Unknown]
